FAERS Safety Report 10791447 (Version 3)
Quarter: 2015Q2

REPORT INFORMATION
  Report Type: Spontaneous
  Country: JP (occurrence: JP)
  Receive Date: 20150213
  Receipt Date: 20150406
  Transmission Date: 20150821
  Serious: Yes (Hospitalization)
  Sender: FDA-Public Use
  Company Number: JP-AMGEN-JPNSP2015012879

PATIENT
  Age: 51 Year
  Sex: Female
  Weight: 50 kg

DRUGS (9)
  1. NEUROTROPIN                        /06251301/ [Concomitant]
     Indication: ANALGESIC THERAPY
     Dosage: UNK
  2. HYPEN                              /00613801/ [Concomitant]
     Active Substance: ETODOLAC
     Indication: ANALGESIC THERAPY
     Dosage: UNK
  3. ENBREL [Suspect]
     Active Substance: ETANERCEPT
     Indication: RHEUMATOID ARTHRITIS
     Dosage: 25 MG, 2X/WEEK
     Route: 058
     Dates: start: 20080717, end: 20101007
  4. ENBREL [Suspect]
     Active Substance: ETANERCEPT
     Dosage: 50 MG, WEEKLY
     Route: 058
     Dates: start: 20101015, end: 20111208
  5. RHEUMATREX [Concomitant]
     Active Substance: METHOTREXATE SODIUM
     Indication: RHEUMATOID ARTHRITIS
     Dosage: 8 MG, WEEKLY
     Route: 048
     Dates: start: 20070906
  6. RHEUMATREX [Concomitant]
     Active Substance: METHOTREXATE SODIUM
     Dosage: 6 MG, WEEKLY
     Route: 048
     Dates: start: 20090403
  7. ENBREL [Suspect]
     Active Substance: ETANERCEPT
     Dosage: 50 MG, WEEKLY
     Route: 058
     Dates: start: 20111215
  8. HYPEN                              /00613801/ [Concomitant]
     Active Substance: ETODOLAC
     Indication: RHEUMATOID ARTHRITIS
     Dosage: UNK
     Route: 048
     Dates: start: 20120607
  9. NEUROTROPIN                        /06251301/ [Concomitant]
     Indication: RHEUMATOID ARTHRITIS
     Dosage: UNK
     Route: 048
     Dates: start: 20120607

REACTIONS (2)
  - Iron deficiency anaemia [Unknown]
  - Rectal cancer [Recovering/Resolving]

NARRATIVE: CASE EVENT DATE: 201103
